FAERS Safety Report 6796021-4 (Version None)
Quarter: 2010Q2

REPORT INFORMATION
  Report Type: 
  Country: None (occurrence: None)
  Receive Date: 20100625
  Receipt Date: 20100611
  Transmission Date: 20101027
  Serious: Yes (Hospitalization, Other)
  Sender: FDA-Public Use
  Company Number: US-ELI_LILLY_AND_COMPANY-US201005007279

PATIENT
  Sex: Male
  Weight: 95.238 kg

DRUGS (8)
  1. EFFIENT [Suspect]
     Indication: STENT PLACEMENT
     Dosage: 10 MG, DAILY (1/D)
     Dates: start: 20100410, end: 20100610
  2. ASPIRIN [Concomitant]
  3. ZOCOR [Concomitant]
     Dosage: 20 MG, 2/D
  4. LOPRESSOR [Concomitant]
     Dosage: 50 MG, 2/D
  5. PEPCID [Concomitant]
     Dosage: 20 MG, DAILY (1/D)
  6. ALTACE [Concomitant]
     Dosage: 2.5 MG, DAILY (1/D)
  7. XANAX [Concomitant]
     Dosage: 0.5 MG, 2/D
  8. NITROGLYCERIN [Concomitant]
     Dosage: UNK, AS NEEDED

REACTIONS (4)
  - ATRIAL FIBRILLATION [None]
  - CHEST PAIN [None]
  - PERICARDIAL EFFUSION [None]
  - RED BLOOD CELL SEDIMENTATION RATE INCREASED [None]
